FAERS Safety Report 5431397-1 (Version None)
Quarter: 2007Q3

REPORT INFORMATION
  Report Type: 
  Country: None (occurrence: None)
  Receive Date: 20070830
  Receipt Date: 20070524
  Transmission Date: 20080115
  Serious: No
  Sender: FDA-Public Use
  Company Number: A0652900A

PATIENT
  Age: 10 Year
  Sex: Female

DRUGS (3)
  1. WELLBUTRIN XL [Suspect]
     Indication: DRUG USE FOR UNKNOWN INDICATION
     Dosage: 150MG IN THE MORNING
     Route: 048
     Dates: start: 20060801
  2. ADDERALL 10 [Suspect]
     Indication: ATTENTION DEFICIT/HYPERACTIVITY DISORDER
     Dosage: 50MG IN THE MORNING
     Route: 048
     Dates: start: 20040101
  3. RISPERDAL [Suspect]
     Indication: SLEEP DISORDER
     Dosage: 1MG AT NIGHT
     Route: 048
     Dates: start: 20060801

REACTIONS (1)
  - SKIN ODOUR ABNORMAL [None]
